FAERS Safety Report 9259077 (Version 1)
Quarter: 2013Q2

REPORT INFORMATION
  Report Type: Spontaneous
  Country: US (occurrence: US)
  Receive Date: 20130426
  Receipt Date: 20130426
  Transmission Date: 20140414
  Serious: Yes (Hospitalization, Other)
  Sender: FDA-Public Use
  Company Number: US200910005987

PATIENT
  Age: 48 Year
  Sex: Female
  Weight: 107.94 kg

DRUGS (10)
  1. BYETTA PEN DISPOSABLE [Suspect]
     Dosage: 10MCG
     Dates: start: 200705, end: 200904
  2. EXENATIDE 10MCG PEN, DISPOSABLE DEVICE [Concomitant]
  3. OMEPRAZOLE [Concomitant]
     Indication: GASTROOESOPHAGEAL REFLUX DISEASE
     Dates: start: 2009, end: 200911
  4. CYMBALTA [Concomitant]
     Indication: SEASONAL AFFECTIVE DISORDER
     Dates: start: 2006, end: 2009
  5. METFORMIN [Concomitant]
     Indication: DIABETES MELLITUS
  6. ALPRAZOLAM [Concomitant]
     Indication: SLEEP DISORDER
     Dates: start: 2000
  7. ATENOLOL [Concomitant]
     Indication: HYPERTENSION
     Dates: start: 2001
  8. TRIAMTERENE + HCTZ [Concomitant]
     Indication: HYPERTENSION
     Dosage: 1DF:75/60 DAILY
     Dates: start: 2001
  9. CYCLOBENZAPRINE [Concomitant]
  10. PLAVIX [Concomitant]

REACTIONS (4)
  - Pancreatitis chronic [Unknown]
  - Pancreatitis acute [Recovered/Resolved]
  - Chest pain [Recovered/Resolved]
  - Diarrhoea [Recovered/Resolved]
